FAERS Safety Report 4841010-X (Version None)
Quarter: 2005Q4

REPORT INFORMATION
  Report Type: 
  Country: None (occurrence: None)
  Receive Date: 20051130
  Receipt Date: 20050824
  Transmission Date: 20060501
  Serious: No
  Sender: FDA-Public Use
  Company Number: US-BRISTOL-MYERS SQUIBB COMPANY-13088893

PATIENT
  Sex: Female
  Weight: 100 kg

DRUGS (5)
  1. ABILIFY [Suspect]
     Indication: BIPOLAR DISORDER
     Route: 048
     Dates: start: 20050819
  2. DEPAKOTE [Concomitant]
  3. ASPIRIN [Concomitant]
  4. ALBUTEROL [Concomitant]
  5. LORATADINE [Concomitant]

REACTIONS (8)
  - AGITATION [None]
  - ANOREXIA [None]
  - ASTHENIA [None]
  - HEADACHE [None]
  - INSOMNIA [None]
  - NAUSEA [None]
  - TREMOR [None]
  - VISION BLURRED [None]
